FAERS Safety Report 11236230 (Version 1)
Quarter: 2015Q3

REPORT INFORMATION
  Report Type: Spontaneous
  Country: FR (occurrence: FR)
  Receive Date: 20150702
  Receipt Date: 20150702
  Transmission Date: 20151125
  Serious: Yes (Hospitalization, Disabling)
  Sender: FDA-Public Use
  Company Number: FR-OTSUKA-DJ201500429

PATIENT
  Age: 35 Year
  Sex: Male

DRUGS (13)
  1. RIVOTRIL [Suspect]
     Active Substance: CLONAZEPAM
     Indication: SCHIZOPHRENIA
     Dosage: UNK
     Route: 048
     Dates: start: 20120327, end: 201309
  2. LOXAPAC [Suspect]
     Active Substance: LOXAPINE SUCCINATE
     Indication: SCHIZOPHRENIA
     Dosage: UNK
     Route: 065
     Dates: start: 20120327
  3. RIVOTRIL [Suspect]
     Active Substance: CLONAZEPAM
     Dosage: UNK
     Route: 065
     Dates: start: 20130409, end: 201309
  4. RISPERDAL [Suspect]
     Active Substance: RISPERIDONE
     Indication: PRODUCT USED FOR UNKNOWN INDICATION
     Dosage: UNK
     Route: 065
     Dates: start: 2013, end: 2013
  5. COUMADINE [Suspect]
     Active Substance: WARFARIN SODIUM
     Indication: PRODUCT USED FOR UNKNOWN INDICATION
     Dosage: UNK
     Route: 065
     Dates: start: 20090618
  6. TERCIAN [Suspect]
     Active Substance: CYAMEMAZINE
     Indication: SCHIZOPHRENIA
     Dosage: UNK
     Route: 048
     Dates: start: 2011
  7. SERESTA [Suspect]
     Active Substance: OXAZEPAM
     Indication: SCHIZOPHRENIA
     Dosage: UNK
     Route: 065
     Dates: start: 20121125
  8. TRANXENE T-TAB [Suspect]
     Active Substance: CLORAZEPATE DIPOTASSIUM
     Indication: SCHIZOPHRENIA
     Dosage: UNK
     Route: 065
     Dates: start: 20130409
  9. TERCIAN [Suspect]
     Active Substance: CYAMEMAZINE
     Dosage: UNK
     Route: 048
     Dates: start: 20130409
  10. LOXAPAC [Suspect]
     Active Substance: LOXAPINE SUCCINATE
     Dosage: UNK
     Route: 065
     Dates: start: 201309
  11. ABILIFY [Suspect]
     Active Substance: ARIPIPRAZOLE
     Indication: SCHIZOPHRENIA
     Dosage: 3 MG, UNK
     Route: 048
     Dates: start: 20110808
  12. XANAX [Suspect]
     Active Substance: ALPRAZOLAM
     Indication: SCHIZOPHRENIA
     Dosage: UNK
     Route: 065
     Dates: start: 20100802
  13. HALOPERIDOL. [Suspect]
     Active Substance: HALOPERIDOL
     Indication: SCHIZOPHRENIA
     Dosage: UNK
     Route: 065
     Dates: start: 201206, end: 20121009

REACTIONS (1)
  - Maculopathy [Unknown]

NARRATIVE: CASE EVENT DATE: 201307
